FAERS Safety Report 10914042 (Version 1)
Quarter: 2015Q1

REPORT INFORMATION
  Report Type: Spontaneous
  Country: US (occurrence: None)
  Receive Date: 20150310
  Receipt Date: 20150310
  Transmission Date: 20150721
  Serious: Yes (Disabling, Other)
  Sender: FDA-Public Use
  Company Number: COL_19272_2015

PATIENT
  Age: 45 Year
  Sex: Female

DRUGS (1)
  1. PREVIDENT 5000 BOOSTER [Suspect]
     Active Substance: SODIUM FLUORIDE
     Indication: PRODUCT USED FOR UNKNOWN INDICATION
     Dosage: ABOUT A PEA SIZED AMOUNT TO HEAD OF TOOTHBRUSH
     Route: 048
     Dates: start: 201302, end: 2013

REACTIONS (11)
  - Skin discolouration [None]
  - Dermatitis [None]
  - Scar [None]
  - Gastrointestinal disorder [None]
  - Hypersensitivity [None]
  - Gastrointestinal fungal infection [None]
  - Autoimmune thyroiditis [None]
  - Skin burning sensation [None]
  - Dyspnoea [None]
  - Mobility decreased [None]
  - Thyroid disorder [None]

NARRATIVE: CASE EVENT DATE: 201302
